FAERS Safety Report 5775970-X (Version None)
Quarter: 2008Q2

REPORT INFORMATION
  Report Type: 
  Country: None (occurrence: None)
  Receive Date: 20080613
  Receipt Date: 20080608
  Transmission Date: 20081010
  Serious: Yes (Other)
  Sender: FDA-Public Use
  Company Number: 2008SP011336

PATIENT
  Age: 10 Year
  Sex: Male

DRUGS (1)
  1. CLARITIN-D 24 HOUR (LORATADINE 10MG/PSEUDOEPHEPRINE 240MG) (10 MG) [Suspect]
     Indication: DRUG USE FOR UNKNOWN INDICATION
     Dosage: 20 MG;ONCE;PO
     Route: 048
     Dates: start: 20080608

REACTIONS (3)
  - EYE SWELLING [None]
  - INCORRECT DOSE ADMINISTERED [None]
  - PSYCHOMOTOR HYPERACTIVITY [None]
